FAERS Safety Report 5867531-9 (Version None)
Quarter: 2008Q3

REPORT INFORMATION
  Report Type: 
  Country: None (occurrence: None)
  Receive Date: 20080902
  Receipt Date: 20070904
  Transmission Date: 20090109
  Serious: No
  Sender: FDA-Public Use
  Company Number: US-ABBOTT-07P-163-0416110-00

PATIENT
  Sex: Male
  Weight: 83.99 kg

DRUGS (3)
  1. DEPAKOTE ER [Suspect]
     Indication: GRAND MAL CONVULSION
     Route: 048
     Dates: start: 20070829
  2. DEPAKOTE ER [Suspect]
     Indication: PETIT MAL EPILEPSY
     Dosage: 1000MG/1250MG QAM AND QPM
     Route: 048
     Dates: start: 20070901
  3. DEPAKOTE ER [Suspect]
     Route: 048
     Dates: start: 20070515

REACTIONS (1)
  - ALOPECIA [None]
